FAERS Safety Report 6259823-9 (Version None)
Quarter: 2009Q3

REPORT INFORMATION
  Report Type: 
  Country: None (occurrence: None)
  Receive Date: 20090706
  Receipt Date: 20090706
  Transmission Date: 20100115
  Serious: Yes (Hospitalization)
  Sender: FDA-Public Use
  Company Number: None

PATIENT
  Age: 64 Year
  Sex: Female

DRUGS (4)
  1. DROPERIDOL [Suspect]
     Dosage: 0.625MG ONCE, IV
     Route: 042
     Dates: start: 20080814, end: 20080814
  2. PROCHLOPERAZINE [Suspect]
     Dosage: 0.625MG ONCE, IV
     Route: 042
     Dates: start: 20080814, end: 20080814
  3. MIDAZOLAM HCL [Suspect]
     Dosage: 5MG IV
     Route: 042
  4. FENTANYL-100 [Suspect]
     Dosage: 100MCG ONCE IV
     Route: 042

REACTIONS (5)
  - ANXIETY [None]
  - DYSTONIA [None]
  - HYPERHIDROSIS [None]
  - MUSCULOSKELETAL PAIN [None]
  - PANIC ATTACK [None]
